FAERS Safety Report 7033171-1 (Version None)
Quarter: 2010Q4

REPORT INFORMATION
  Report Type: 
  Country: None (occurrence: None)
  Receive Date: 20101007
  Receipt Date: 20101005
  Transmission Date: 20110411
  Serious: Yes (Other)
  Sender: FDA-Public Use
  Company Number: A0884986B

PATIENT
  Sex: Male
  Weight: 3 kg

DRUGS (1)
  1. ALLI [Suspect]
     Dates: start: 20091201, end: 20091224

REACTIONS (4)
  - DRUG EXPOSURE DURING PREGNANCY [None]
  - DRUG EXPOSURE VIA BREAST MILK [None]
  - HEART RATE INCREASED [None]
  - PREMATURE BABY [None]
